FAERS Safety Report 7936428-2 (Version None)
Quarter: 2011Q4

REPORT INFORMATION
  Report Type: 
  Country: None (occurrence: None)
  Receive Date: 20111123
  Receipt Date: 20111114
  Transmission Date: 20120403
  Serious: Yes (Hospitalization, Other)
  Sender: FDA-Public Use
  Company Number: US-BAYER-2011-020210

PATIENT
  Age: 27 Year
  Sex: Female
  Weight: 98.639 kg

DRUGS (14)
  1. MULTIVITAMIN 50+ YEAR FORMULA [Concomitant]
     Indication: UNEVALUABLE EVENT
     Dosage: UNK UNK, QD
  2. AUGMENTIN [Concomitant]
     Dosage: UNK
     Dates: end: 20091204
  3. PATANOL [Concomitant]
     Dosage: 0.1 %, QD
     Route: 047
  4. DROSPIRENONE AND ETHINYL ESTRADIOL [Suspect]
     Indication: UNEVALUABLE EVENT
  5. NASONEX [Concomitant]
     Indication: UNEVALUABLE EVENT
     Dosage: 50 ?G, QD
     Route: 045
  6. TYLENOL ARTHRITIS EXTENDED RELIEF [Concomitant]
  7. XYZAL [Concomitant]
     Dosage: 5 MG, QD
     Route: 048
  8. CITRACAL D [Concomitant]
     Dosage: UNK UNK, QD
     Route: 048
  9. DROSPIRENONE AND ETHINYL ESTRADIOL [Suspect]
     Indication: ORAL CONTRACEPTION
     Dosage: UNK
     Dates: start: 20081214, end: 20100204
  10. YASMIN [Suspect]
     Indication: ORAL CONTRACEPTION
     Dosage: UNK
     Dates: start: 20030301, end: 20080601
  11. PREVACID [Concomitant]
     Dosage: 30 MG, QD
     Route: 048
  12. IBUPROPHEN [Concomitant]
     Dosage: 600 MG, QD
     Route: 048
  13. YASMIN [Suspect]
     Indication: UNEVALUABLE EVENT
  14. MOTRIN [Concomitant]

REACTIONS (2)
  - BILIARY DYSKINESIA [None]
  - CHOLECYSTECTOMY [None]
